FAERS Safety Report 21473301 (Version 1)
Quarter: 2022Q4

REPORT INFORMATION
  Report Type: Spontaneous
  Country: CA (occurrence: CA)
  Receive Date: 20221018
  Receipt Date: 20221018
  Transmission Date: 20230112
  Serious: Yes (Other)
  Sender: FDA-Public Use
  Company Number: CA-PFIZER INC-202201232980

PATIENT
  Age: 19 Year
  Sex: Female

DRUGS (3)
  1. METHOTREXATE SODIUM [Suspect]
     Active Substance: METHOTREXATE SODIUM
     Dosage: DOSAGE NOT AVAILABLE
     Route: 042
     Dates: start: 202205, end: 202208
  2. MESALAMINE [Concomitant]
     Active Substance: MESALAMINE
     Dosage: 4.8 G, DAILY
  3. MESALAMINE [Concomitant]
     Active Substance: MESALAMINE
     Dosage: NIGHTLY

REACTIONS (3)
  - Haematochezia [Not Recovered/Not Resolved]
  - Alopecia [Unknown]
  - Abdominal pain [Recovering/Resolving]

NARRATIVE: CASE EVENT DATE: 20220101
